FAERS Safety Report 13737382 (Version 2)
Quarter: 2017Q3

REPORT INFORMATION
  Report Type: Spontaneous
  Country: FR (occurrence: FR)
  Receive Date: 20170710
  Receipt Date: 20170906
  Transmission Date: 20171127
  Serious: Yes (Hospitalization)
  Sender: FDA-Public Use
  Company Number: FR-JNJFOC-20170705691

PATIENT
  Age: 27 Year
  Sex: Male

DRUGS (2)
  1. IXPRIM [Suspect]
     Active Substance: ACETAMINOPHEN\TRAMADOL HYDROCHLORIDE
     Indication: PAIN
     Route: 048
     Dates: end: 20170602
  2. BREXINE [Suspect]
     Active Substance: PIROXICAM BETADEX
     Indication: PAIN
     Dosage: ALTERNATIVELY TWICE A DAY FOR 5 DAYS AND ONCE A DAY FOR 5 DAYS
     Route: 048
     Dates: start: 201704, end: 20170602

REACTIONS (5)
  - Diverticulitis [Recovered/Resolved]
  - Vomiting [Recovered/Resolved]
  - Diarrhoea [Recovered/Resolved]
  - Hypokalaemia [Recovered/Resolved]
  - Abdominal pain [Recovered/Resolved]

NARRATIVE: CASE EVENT DATE: 201704
